FAERS Safety Report 7313586-4 (Version None)
Quarter: 2011Q1

REPORT INFORMATION
  Report Type: 
  Country: None (occurrence: None)
  Receive Date: 20110225
  Receipt Date: 20110215
  Transmission Date: 20110831
  Serious: Yes (Other)
  Sender: FDA-Public Use
  Company Number: CA-JNJFOC-20100700988

PATIENT
  Sex: Male
  Weight: 76 kg

DRUGS (1)
  1. REMICADE [Suspect]
     Indication: COLITIS ULCERATIVE
     Route: 042

REACTIONS (5)
  - MUSCULOSKELETAL CHEST PAIN [None]
  - DYSPEPSIA [None]
  - PERIPANCREATIC FLUID COLLECTION [None]
  - FATIGUE [None]
  - VOMITING [None]
